FAERS Safety Report 7099119-9 (Version None)
Quarter: 2010Q4

REPORT INFORMATION
  Report Type: 
  Country: None (occurrence: None)
  Receive Date: 20101112
  Receipt Date: 20101104
  Transmission Date: 20110411
  Serious: Yes (Hospitalization, Other)
  Sender: FDA-Public Use
  Company Number: B0676118A

PATIENT
  Sex: Male

DRUGS (6)
  1. AVODART [Suspect]
     Dates: start: 20070301
  2. METOPROLOL SUCCINATE [Concomitant]
  3. ASAFLOW [Concomitant]
  4. URGENIN [Concomitant]
  5. OMIC [Concomitant]
  6. GLUCOPHAGE [Concomitant]

REACTIONS (1)
  - PROSTATE CANCER [None]
